FAERS Safety Report 13355706 (Version 1)
Quarter: 2017Q1

REPORT INFORMATION
  Report Type: Spontaneous
  Country: US (occurrence: US)
  Receive Date: 20170321
  Receipt Date: 20170321
  Transmission Date: 20170429
  Serious: No
  Sender: FDA-Public Use
  Company Number: US-BAUSCH-BL-2016-013142

PATIENT
  Age: 47 Year
  Sex: Female
  Weight: 44.49 kg

DRUGS (2)
  1. RENOVA [Suspect]
     Active Substance: TRETINOIN
     Indication: ACNE
     Dosage: TWO TO THREE TIMES
     Route: 061
     Dates: start: 201605
  2. RENOVA [Suspect]
     Active Substance: TRETINOIN
     Indication: SKIN WRINKLING

REACTIONS (3)
  - Skin hypopigmentation [Not Recovered/Not Resolved]
  - Feeling abnormal [Unknown]
  - Ephelides [Unknown]

NARRATIVE: CASE EVENT DATE: 2016
